FAERS Safety Report 20831611 (Version 1)
Quarter: 2022Q2

REPORT INFORMATION
  Report Type: Spontaneous
  Country: HR (occurrence: HR)
  Receive Date: 20220516
  Receipt Date: 20220516
  Transmission Date: 20220720
  Serious: Yes (Hospitalization, Other)
  Sender: FDA-Public Use
  Company Number: HR-PFIZER INC-202200669610

PATIENT
  Sex: Female

DRUGS (5)
  1. ENBREL [Suspect]
     Active Substance: ETANERCEPT
     Indication: Product used for unknown indication
     Dosage: 50 MG, WEEKLY
     Route: 058
     Dates: start: 201008
  2. PREDNISONE [Concomitant]
     Active Substance: PREDNISONE
     Dosage: 5 MG
  3. CYCLOSPORINE [Concomitant]
     Active Substance: CYCLOSPORINE
     Dosage: 50 MG
  4. DICLOFENAC [Concomitant]
     Active Substance: DICLOFENAC
     Dosage: UNK UNK, 1X/DAY
  5. CONTROLOC [Concomitant]
     Active Substance: PANTOPRAZOLE SODIUM
     Dosage: 20 MG

REACTIONS (4)
  - Dislocation of vertebra [Unknown]
  - Cervicobrachial syndrome [Unknown]
  - Hyperkeratosis [Unknown]
  - Emphysema [Unknown]

NARRATIVE: CASE EVENT DATE: 20120101
